FAERS Safety Report 8905155 (Version 1)
Quarter: 2012Q4

REPORT INFORMATION
  Report Type: 
  Country: US (occurrence: US)
  Receive Date: 20121111
  Receipt Date: 20121111
  Transmission Date: 20130627
  Serious: Yes (Hospitalization)
  Sender: FDA-Public Use
  Company Number: US-009507513-1211USA003474

PATIENT
  Age: 68 Year
  Sex: Female

DRUGS (3)
  1. VICTRELIS [Suspect]
     Indication: HEPATITIS C
     Dosage: 800 mg, tid(4 capsules,with food,start 4 weeks )
     Route: 048
     Dates: start: 20120906, end: 20121103
  2. RIBAVIRIN [Suspect]
  3. PEGASYS [Suspect]

REACTIONS (8)
  - Fluid retention [Recovered/Resolved]
  - Cough [Recovered/Resolved]
  - Dyspnoea [Recovered/Resolved]
  - Anaemia [Recovered/Resolved]
  - Platelet count decreased [Recovered/Resolved]
  - Fatigue [Recovered/Resolved]
  - Asthenia [Recovered/Resolved]
  - Decreased appetite [Recovered/Resolved]
